FAERS Safety Report 9035996 (Version 1)
Quarter: 2013Q1

REPORT INFORMATION
  Report Type: Report from Study
  Country: US (occurrence: US)
  Receive Date: 20130129
  Receipt Date: 20130129
  Transmission Date: 20140127
  Serious: No
  Sender: FDA-Public Use
  Company Number: US-ABBOTT-12P-163-0893623-00

PATIENT
  Age: 56 Year
  Sex: Female

DRUGS (11)
  1. HUMIRA 40 MG/0.8 ML PEN [Suspect]
     Indication: CROHN^S DISEASE
     Dosage: SECOND DOSE
     Dates: start: 20111230
  2. ACTONEL [Concomitant]
     Indication: OSTEOPENIA
     Route: 048
  3. AZATHIOPRINE [Concomitant]
     Indication: CROHN^S DISEASE
     Dosage: IN THE MORNING
  4. FOLIC ACID [Concomitant]
     Indication: PRODUCT USED FOR UNKNOWN INDICATION
     Dosage: DAILY
  5. CALTRATE [Concomitant]
     Indication: PRODUCT USED FOR UNKNOWN INDICATION
  6. CA PLUS VITAMIN C [Concomitant]
     Indication: PRODUCT USED FOR UNKNOWN INDICATION
     Dosage: 1-2 DAILY
  7. CHOLESTIPOL [Concomitant]
     Indication: ABNORMAL FAECES
     Dosage: AT BEDTIME
  8. CLARITIN [Concomitant]
     Indication: HYPERSENSITIVITY
  9. CLARITIN [Concomitant]
     Indication: MIDDLE EAR EFFUSION
  10. B12 [Concomitant]
     Indication: PRODUCT USED FOR UNKNOWN INDICATION
  11. IMMODIUM [Concomitant]
     Indication: PRODUCT USED FOR UNKNOWN INDICATION

REACTIONS (2)
  - Injection site rash [Recovered/Resolved]
  - Osteopenia [Unknown]
